FAERS Safety Report 7566961-7 (Version None)
Quarter: 2011Q2

REPORT INFORMATION
  Report Type: 
  Country: None (occurrence: None)
  Receive Date: 20110616
  Receipt Date: 20110606
  Transmission Date: 20111010
  Serious: Yes (Hospitalization, Other)
  Sender: FDA-Public Use
  Company Number: 2011P1006995

PATIENT
  Age: 3 Year
  Sex: Male
  Weight: 10 kg

DRUGS (1)
  1. PHENYTOIN [Suspect]
     Indication: HEAD INJURY
     Dosage: 375 MG; QD

REACTIONS (9)
  - VOMITING [None]
  - ALTERED STATE OF CONSCIOUSNESS [None]
  - HYPOKINESIA [None]
  - URINARY RETENTION [None]
  - GRAND MAL CONVULSION [None]
  - NYSTAGMUS [None]
  - PYREXIA [None]
  - ENCEPHALITIS [None]
  - ATAXIA [None]
